FAERS Safety Report 5605732-5 (Version None)
Quarter: 2008Q1

REPORT INFORMATION
  Report Type: 
  Country: None (occurrence: None)
  Receive Date: 20080129
  Receipt Date: 20080116
  Transmission Date: 20080703
  Serious: Yes (Hospitalization)
  Sender: FDA-Public Use
  Company Number: CA-ELI_LILLY_AND_COMPANY-CA200710007573

PATIENT
  Age: 52 Year
  Sex: Female

DRUGS (7)
  1. FORTEO [Suspect]
     Indication: OSTEOPOROSIS
     Dosage: 20 UG, DAILY (1/D)
     Route: 058
     Dates: start: 20070713, end: 20070801
  2. FORTEO [Suspect]
     Dosage: 20 UG, DAILY (1/D)
     Route: 058
     Dates: start: 20070901, end: 20071018
  3. FORTEO [Suspect]
     Dosage: 20 UG, DAILY (1/D)
     Route: 058
     Dates: start: 20071101, end: 20071201
  4. TYLENOL /USA/ [Concomitant]
  5. COUMADIN [Concomitant]
  6. FLOMAX [Concomitant]
  7. CALCIUM GLUCONATE [Concomitant]

REACTIONS (1)
  - ABDOMINAL PAIN [None]
